FAERS Safety Report 4670502-1 (Version None)
Quarter: 2005Q2

REPORT INFORMATION
  Report Type: 
  Country: None (occurrence: None)
  Receive Date: 20050523
  Receipt Date: 20050131
  Transmission Date: 20051028
  Serious: Yes (Hospitalization)
  Sender: FDA-Public Use
  Company Number: US-MERCK-0502USA00105

PATIENT
  Age: 52 Year
  Sex: Female
  Weight: 70 kg

DRUGS (7)
  1. VIOXX [Suspect]
     Indication: BACK PAIN
     Route: 048
     Dates: start: 20010101
  2. VIOXX [Suspect]
     Route: 048
     Dates: end: 20040930
  3. VIOXX [Suspect]
     Route: 048
     Dates: start: 20020710, end: 20020710
  4. SYNTHROID [Concomitant]
     Route: 065
  5. DIOVAN HCT [Concomitant]
     Route: 065
  6. TOPROL-XL [Concomitant]
     Route: 065
     Dates: start: 20020101
  7. COZAAR [Concomitant]
     Route: 065

REACTIONS (14)
  - ABDOMINAL PAIN LOWER [None]
  - ACUTE MYOCARDIAL INFARCTION [None]
  - ARTHRALGIA [None]
  - ATELECTASIS [None]
  - BLOOD CHOLESTEROL INCREASED [None]
  - BLOOD POTASSIUM DECREASED [None]
  - CALCULUS URETHRAL [None]
  - CHEST PAIN [None]
  - EMOTIONAL DISTRESS [None]
  - LEFT VENTRICULAR END-DIASTOLIC PRESSURE INCREASED [None]
  - MYOCARDIAL ISCHAEMIA [None]
  - NASOPHARYNGITIS [None]
  - PAIN [None]
  - SCIATICA [None]
